FAERS Safety Report 14471259 (Version 1)
Quarter: 2018Q1

REPORT INFORMATION
  Report Type: Spontaneous
  Country: US (occurrence: US)
  Receive Date: 20180130
  Receipt Date: 20180130
  Transmission Date: 20180509
  Serious: Yes (Life-Threatening, Other)
  Sender: FDA-Public Use
  Company Number: None

PATIENT
  Age: 46 Year
  Sex: Female
  Weight: 47.6 kg

DRUGS (2)
  1. CYCLOPHOSPHAMIDE (CYTOXAN) [Concomitant]
  2. VARUBI [Suspect]
     Active Substance: ROLAPITANT
     Indication: PROPHYLAXIS OF NAUSEA AND VOMITING
     Dosage: ?          OTHER FREQUENCY:ONCE;?
     Route: 042

REACTIONS (4)
  - Paraesthesia oral [None]
  - Infusion related reaction [None]
  - Pharyngeal oedema [None]
  - Paraesthesia [None]

NARRATIVE: CASE EVENT DATE: 20180111
